FAERS Safety Report 5939908-4 (Version None)
Quarter: 2008Q4

REPORT INFORMATION
  Report Type: 
  Country: None (occurrence: None)
  Receive Date: 20081104
  Receipt Date: 20081021
  Transmission Date: 20090506
  Serious: Yes (Other)
  Sender: FDA-Public Use
  Company Number: FR-SOLVAY-00208005136

PATIENT
  Age: 69 Year
  Sex: Male
  Weight: 70 kg

DRUGS (6)
  1. TAHOR [Concomitant]
     Indication: DRUG USE FOR UNKNOWN INDICATION
     Dosage: DAILY DOSE:  UNKNOWN
     Route: 065
     Dates: end: 20080101
  2. COVERSYL [Suspect]
     Indication: CORONARY ARTERY DISEASE
     Dosage: DAILY DOSE: 6 MILLIGRAM(S)
     Route: 048
     Dates: end: 20080101
  3. ZANIDIP [Concomitant]
     Indication: DRUG USE FOR UNKNOWN INDICATION
     Dosage: DAILY DOSE:  UNKNOWN
     Route: 065
  4. PREVISCAN [Concomitant]
     Indication: DRUG USE FOR UNKNOWN INDICATION
     Dosage: DAILY DOSE:  UNKNOWN
     Route: 065
  5. SECTRAL [Concomitant]
     Indication: DRUG USE FOR UNKNOWN INDICATION
     Dosage: DAILY DOSE:  UNKNOWN
     Route: 065
  6. FLECAINE [Concomitant]
     Indication: DRUG USE FOR UNKNOWN INDICATION
     Dosage: DAILY DOSE:  UNKNOWN
     Route: 065

REACTIONS (2)
  - ARTERITIS OBLITERANS [None]
  - PAIN IN EXTREMITY [None]
